FAERS Safety Report 10128652 (Version 1)
Quarter: 2014Q2

REPORT INFORMATION
  Report Type: Spontaneous
  Country: FR (occurrence: FR)
  Receive Date: 20140428
  Receipt Date: 20140428
  Transmission Date: 20141212
  Serious: Yes (Other)
  Sender: FDA-Public Use
  Company Number: FR-JNJFOC-20140415322

PATIENT
  Age: 62 Year
  Sex: Female

DRUGS (12)
  1. XARELTO [Suspect]
     Indication: THROMBOSIS PROPHYLAXIS
     Route: 048
     Dates: start: 20140318, end: 20140318
  2. XANAX [Concomitant]
     Indication: ANAESTHETIC PREMEDICATION
     Route: 048
     Dates: start: 20140317, end: 20140317
  3. CEFAZOLINE [Concomitant]
     Indication: ANTIBIOTIC PROPHYLAXIS
     Route: 042
     Dates: start: 20140317, end: 20140317
  4. LOXEN [Concomitant]
     Route: 065
     Dates: start: 20140320
  5. DOLIPRAN [Concomitant]
     Route: 048
     Dates: start: 20140317
  6. TRAMADOL [Concomitant]
     Dosage: 2 TABLETS EVERY 8 HOURS WHEN NEEDED
     Route: 048
     Dates: start: 20140319
  7. ACTISKENAN [Concomitant]
     Indication: PAIN
     Route: 048
     Dates: start: 20140317
  8. MORPHINE HYDROCHLORIDE [Concomitant]
     Route: 042
     Dates: start: 20140317
  9. EUPANTOL [Concomitant]
     Route: 048
     Dates: start: 20140417
  10. PROFENID [Concomitant]
     Dosage: 200 MG IN INJECTION
     Route: 042
     Dates: start: 20140317
  11. LEVOTHYROX [Concomitant]
     Indication: HYPOTHYROIDISM
     Route: 048
  12. MELAXOSE [Concomitant]
     Indication: CONSTIPATION PROPHYLAXIS
     Dosage: 1 TEASPOON TWICE A DAY
     Route: 048
     Dates: start: 20140318

REACTIONS (2)
  - Drug ineffective [Recovered/Resolved]
  - Deep vein thrombosis [Recovered/Resolved]
